FAERS Safety Report 25426154 (Version 1)
Quarter: 2025Q2

REPORT INFORMATION
  Report Type: Spontaneous
  Country: US (occurrence: US)
  Receive Date: 20250612
  Receipt Date: 20250612
  Transmission Date: 20250717
  Serious: Yes (Death, Hospitalization, Other)
  Sender: NOVO NORDISK
  Company Number: US-NOVOPROD-1449555

PATIENT
  Age: 64 Year
  Sex: Male
  Weight: 242.63 kg

DRUGS (1)
  1. OZEMPIC [Suspect]
     Active Substance: SEMAGLUTIDE
     Indication: Weight control
     Dates: start: 2022

REACTIONS (9)
  - Ileus paralytic [Fatal]
  - Large intestine perforation [Fatal]
  - Abnormal loss of weight [Unknown]
  - Gait inability [Not Recovered/Not Resolved]
  - Sepsis [Unknown]
  - Asthenia [Not Recovered/Not Resolved]
  - Tachycardia [Unknown]
  - Pharyngeal swelling [Unknown]
  - Off label use [Recovered/Resolved]

NARRATIVE: CASE EVENT DATE: 20220101
